FAERS Safety Report 4601992-8 (Version None)
Quarter: 2005Q2

REPORT INFORMATION
  Report Type: 
  Country: None (occurrence: None)
  Receive Date: 20050201
  Receipt Date: 20041025
  Transmission Date: 20051028
  Serious: Yes (Hospitalization)
  Sender: FDA-Public Use
  Company Number: 200419986BWH

PATIENT
  Age: 37 Year
  Sex: Female
  Weight: 49.4421 kg

DRUGS (4)
  1. CIPRO XR [Suspect]
     Indication: URINARY TRACT INFECTION
     Dosage: 500 MG, QD; ORAL (SEE IMAGE)
     Route: 048
     Dates: start: 20040514, end: 20040516
  2. CIPRO XR [Suspect]
     Indication: URINARY TRACT INFECTION
     Dosage: 500 MG, QD; ORAL (SEE IMAGE)
     Route: 048
     Dates: start: 20040517, end: 20040523
  3. HYDROCODONE BITARTRATE [Concomitant]
  4. TENORMIN [Concomitant]

REACTIONS (9)
  - ANAEMIA [None]
  - BLOOD CREATININE INCREASED [None]
  - BLOOD UREA INCREASED [None]
  - CHILLS [None]
  - DIARRHOEA [None]
  - NAUSEA [None]
  - NEPHRITIS INTERSTITIAL [None]
  - VOMITING [None]
  - WEIGHT DECREASED [None]
